FAERS Safety Report 21703781 (Version 1)
Quarter: 2022Q4

REPORT INFORMATION
  Report Type: Report from Study
  Country: US (occurrence: US)
  Receive Date: 20221209
  Receipt Date: 20221209
  Transmission Date: 20230113
  Serious: No
  Sender: FDA-Public Use
  Company Number: US-ABBVIE-4183294

PATIENT
  Sex: Female

DRUGS (1)
  1. HUMIRA [Suspect]
     Active Substance: ADALIMUMAB
     Indication: Psoriatic arthropathy
     Route: 058

REACTIONS (5)
  - Injection site pruritus [Recovered/Resolved]
  - Injection site pain [Recovered/Resolved]
  - Paraesthesia [Recovered/Resolved]
  - Injection site erythema [Recovered/Resolved]
  - Hypoaesthesia oral [Recovered/Resolved]
